FAERS Safety Report 18381731 (Version 1)
Quarter: 2020Q4

REPORT INFORMATION
  Report Type: Spontaneous
  Country: US (occurrence: US)
  Receive Date: 20201013
  Receipt Date: 20201013
  Transmission Date: 20210114
  Serious: Yes (Hospitalization)
  Sender: FDA-Public Use
  Company Number: None

PATIENT
  Age: 73 Year
  Sex: Male
  Weight: 135 kg

DRUGS (1)
  1. CLINDAMYCIN (CLINDAMYCIN HCL 150MG CAP) [Suspect]
     Active Substance: CLINDAMYCIN
     Indication: CELLULITIS
     Route: 048
     Dates: start: 20201004, end: 20201004

REACTIONS (5)
  - Diarrhoea [None]
  - Blood glucose increased [None]
  - Hyponatraemia [None]
  - Blood chloride decreased [None]
  - Vomiting [None]

NARRATIVE: CASE EVENT DATE: 20201005
